FAERS Safety Report 6054893-5 (Version None)
Quarter: 2009Q1

REPORT INFORMATION
  Report Type: 
  Country: None (occurrence: None)
  Receive Date: 20090128
  Receipt Date: 20090119
  Transmission Date: 20090719
  Serious: Yes (Hospitalization, Congenital Anomaly, Other)
  Sender: FDA-Public Use
  Company Number: PHBS2009TR00550

PATIENT
  Sex: Female
  Weight: 2.4 kg

DRUGS (3)
  1. OXCARBAZEPINE [Suspect]
     Dosage: MATERNAL DOSE-1200MG/DAY
     Route: 064
  2. CARBAMAZEPINE [Suspect]
     Dosage: MATERNAL DOSE-1000MG/DAY
     Route: 064
  3. LAMOTRIGINE [Suspect]
     Dosage: MATERNAL DOSE - 100 MG/DAY
     Route: 062

REACTIONS (11)
  - ABNORMAL PALMAR/PLANTAR CREASES [None]
  - APLASIA [None]
  - DYSMORPHISM [None]
  - FEEDING DISORDER NEONATAL [None]
  - HYPERTELORISM OF ORBIT [None]
  - HYPOGLYCAEMIA NEONATAL [None]
  - LOW SET EARS [None]
  - MICROGNATHIA [None]
  - MUSCLE CONTRACTURE [None]
  - RESPIRATORY ARREST [None]
  - SMALL FOR DATES BABY [None]
